FAERS Safety Report 10229831 (Version 2)
Quarter: 2014Q2

REPORT INFORMATION
  Report Type: Spontaneous
  Country: CA (occurrence: CA)
  Receive Date: 20140611
  Receipt Date: 20140611
  Transmission Date: 20141212
  Serious: Yes (Hospitalization)
  Sender: FDA-Public Use
  Company Number: CA-BAYER-2014-076005

PATIENT
  Age: 21 Year
  Sex: Female

DRUGS (2)
  1. JAYDESS [Suspect]
     Indication: CONTRACEPTION
     Dosage: 14 MCG/24HR, CONT
     Route: 015
     Dates: start: 20140410
  2. JAYDESS [Suspect]
     Indication: DYSMENORRHOEA

REACTIONS (3)
  - Oedema peripheral [Not Recovered/Not Resolved]
  - Abnormal weight gain [Not Recovered/Not Resolved]
  - Eye swelling [Not Recovered/Not Resolved]
